FAERS Safety Report 6825050-7 (Version None)
Quarter: 2010Q3

REPORT INFORMATION
  Report Type: 
  Country: None (occurrence: None)
  Receive Date: 20100708
  Receipt Date: 20070102
  Transmission Date: 20110219
  Serious: No
  Sender: FDA-Public Use
  Company Number: US-PFIZER INC-2007002162

PATIENT
  Sex: Male
  Weight: 77.11 kg

DRUGS (4)
  1. CHANTIX [Suspect]
     Indication: SMOKING CESSATION THERAPY
     Dates: start: 20061205
  2. RESTORIL [Concomitant]
  3. ROZEREM [Concomitant]
  4. METROGEL [Concomitant]

REACTIONS (2)
  - HEADACHE [None]
  - NAUSEA [None]
